FAERS Safety Report 10586371 (Version 3)
Quarter: 2015Q1

REPORT INFORMATION
  Report Type: Report from Study
  Country: AU (occurrence: AU)
  Receive Date: 20141117
  Receipt Date: 20150126
  Transmission Date: 20150720
  Serious: Yes (Hospitalization)
  Sender: FDA-Public Use
  Company Number: AU-ROCHE-1490356

PATIENT
  Age: 39 Year
  Sex: Female

DRUGS (1)
  1. ACTEMRA [Suspect]
     Active Substance: TOCILIZUMAB
     Indication: RHEUMATOID ARTHRITIS
     Route: 042
     Dates: start: 20120330

REACTIONS (3)
  - Abdominal abscess [Unknown]
  - Wound [Unknown]
  - Wound [Recovered/Resolved]

NARRATIVE: CASE EVENT DATE: 201410
